FAERS Safety Report 7534721-9 (Version None)
Quarter: 2011Q2

REPORT INFORMATION
  Report Type: 
  Country: None (occurrence: None)
  Receive Date: 20110609
  Receipt Date: 20110419
  Transmission Date: 20111010
  Serious: Yes (Other)
  Sender: FDA-Public Use
  Company Number: PHBS2010DE00583

PATIENT
  Sex: Female
  Weight: 70 kg

DRUGS (1)
  1. GLEEVEC [Suspect]
     Dosage: 400 MG, PER DAY
     Route: 048
     Dates: start: 20081001

REACTIONS (5)
  - INFLUENZA [None]
  - PYREXIA [None]
  - CARDIOVASCULAR DISORDER [None]
  - SLUGGISHNESS [None]
  - COUGH [None]
